FAERS Safety Report 8241657-7 (Version None)
Quarter: 2012Q1

REPORT INFORMATION
  Report Type: 
  Country: None (occurrence: None)
  Receive Date: 20120328
  Receipt Date: 20120320
  Transmission Date: 20120608
  Serious: Yes (Other)
  Sender: FDA-Public Use
  Company Number: US-ASTRAZENECA-2012SE05201

PATIENT
  Age: 51 Year
  Sex: Female

DRUGS (2)
  1. NEXIUM [Suspect]
     Route: 048
  2. PEPCID [Concomitant]

REACTIONS (5)
  - THROAT CANCER [None]
  - BLISTER [None]
  - PHARYNGEAL ULCERATION [None]
  - DYSPHAGIA [None]
  - OROPHARYNGEAL PAIN [None]
